FAERS Safety Report 5396874-0 (Version None)
Quarter: 2007Q3

REPORT INFORMATION
  Report Type: 
  Country: None (occurrence: None)
  Receive Date: 20070725
  Receipt Date: 20070725
  Transmission Date: 20080115
  Serious: Yes (Death, Other)
  Sender: FDA-Public Use
  Company Number: GB-BRISTOL-MYERS SQUIBB COMPANY-13856778

PATIENT
  Age: 32 Year
  Sex: Male

DRUGS (2)
  1. ETOPOSIDE [Suspect]
     Indication: HODGKIN'S DISEASE
     Route: 048
  2. LOMUSTINE [Suspect]
     Indication: HODGKIN'S DISEASE
     Route: 048

REACTIONS (3)
  - ACCIDENTAL OVERDOSE [None]
  - DRUG DISPENSING ERROR [None]
  - MULTI-ORGAN FAILURE [None]
